FAERS Safety Report 24610432 (Version 5)
Quarter: 2025Q3

REPORT INFORMATION
  Report Type: Spontaneous
  Country: US (occurrence: US)
  Receive Date: 20241112
  Receipt Date: 20250915
  Transmission Date: 20251020
  Serious: No
  Sender: SUNOVION
  Company Number: US-SMPA-2024SPA004664AA

PATIENT
  Age: 71 Year
  Sex: Male

DRUGS (5)
  1. ORGOVYX [Suspect]
     Active Substance: RELUGOLIX
     Indication: Prostate cancer
     Dosage: 120 MG, QD (AROUND THE SAME TIME)
     Route: 048
  2. METFORMIN [Concomitant]
     Active Substance: METFORMIN HYDROCHLORIDE
     Indication: Diabetes mellitus
     Dosage: 500 MG, QD
  3. METFORMIN [Concomitant]
     Active Substance: METFORMIN HYDROCHLORIDE
     Dosage: 500 MG, BID
  4. LEVOTHYROXINE [Concomitant]
     Active Substance: LEVOTHYROXINE
     Indication: Thyroid disorder
     Dosage: 35 MG, QD
  5. ATORVASTATIN [Concomitant]
     Active Substance: ATORVASTATIN
     Indication: Blood cholesterol abnormal
     Dosage: 20 MG, QD

REACTIONS (16)
  - Feeling abnormal [Unknown]
  - Muscle spasms [Unknown]
  - Muscle atrophy [Unknown]
  - Weight decreased [Unknown]
  - Sleep disorder [Unknown]
  - Trigger finger [Unknown]
  - Abdominal pain upper [Unknown]
  - Weight increased [Unknown]
  - Arthritis [Unknown]
  - Hot flush [Unknown]
  - Constipation [Unknown]
  - Diarrhoea [Unknown]
  - Hyperhidrosis [Unknown]
  - Blood glucose increased [Recovering/Resolving]
  - Fatigue [Unknown]
  - Product use issue [Unknown]

NARRATIVE: CASE EVENT DATE: 20250731
